FAERS Safety Report 7964959-8 (Version None)
Quarter: 2011Q4

REPORT INFORMATION
  Report Type: 
  Country: None (occurrence: None)
  Receive Date: 20111208
  Receipt Date: 20111201
  Transmission Date: 20120403
  Serious: Yes (Other)
  Sender: FDA-Public Use
  Company Number: US-PURDUE-USA-2011-0079153

PATIENT
  Sex: Male

DRUGS (1)
  1. OXYCONTIN [Suspect]
     Indication: PAIN
     Dosage: 80 MG, BID
     Route: 048
     Dates: start: 20081006, end: 20081006

REACTIONS (4)
  - DENTAL CARIES [None]
  - ENDODONTIC PROCEDURE [None]
  - OSTEORADIONECROSIS [None]
  - TOOTH EXTRACTION [None]
